FAERS Safety Report 20161207 (Version 2)
Quarter: 2022Q2

REPORT INFORMATION
  Report Type: Spontaneous
  Country: US (occurrence: US)
  Receive Date: 20211208
  Receipt Date: 20220512
  Transmission Date: 20220721
  Serious: No
  Sender: FDA-Public Use
  Company Number: US-GILEAD-2021-0557433

PATIENT
  Sex: Male
  Weight: 97.506 kg

DRUGS (61)
  1. ATRIPLA [Suspect]
     Active Substance: EFAVIRENZ\EMTRICITABINE\TENOFOVIR DISOPROXIL FUMARATE
     Indication: HIV infection
     Dosage: UNK
     Route: 048
     Dates: start: 2005
  2. ATRIPLA [Suspect]
     Active Substance: EFAVIRENZ\EMTRICITABINE\TENOFOVIR DISOPROXIL FUMARATE
     Dosage: UNK
     Route: 048
     Dates: start: 200710, end: 201306
  3. TRUVADA [Suspect]
     Active Substance: EMTRICITABINE\TENOFOVIR DISOPROXIL FUMARATE
     Indication: HIV infection
     Dosage: UNK
     Route: 048
     Dates: start: 200505, end: 200710
  4. STRIBILD [Suspect]
     Active Substance: COBICISTAT\ELVITEGRAVIR\EMTRICITABINE\TENOFOVIR DISOPROXIL FUMARATE
     Indication: HIV infection
     Dosage: UNK
     Route: 048
     Dates: start: 2005
  5. STRIBILD [Suspect]
     Active Substance: COBICISTAT\ELVITEGRAVIR\EMTRICITABINE\TENOFOVIR DISOPROXIL FUMARATE
     Dosage: UNK
     Route: 048
     Dates: start: 201307, end: 201711
  6. BIKTARVY [Concomitant]
     Active Substance: BICTEGRAVIR SODIUM\EMTRICITABINE\TENOFOVIR ALAFENAMIDE FUMARATE
  7. GENVOYA [Concomitant]
     Active Substance: COBICISTAT\ELVITEGRAVIR\EMTRICITABINE\TENOFOVIR ALAFENAMIDE FUMARATE
  8. CRIXIVAN [Concomitant]
     Active Substance: INDINAVIR SULFATE
  9. EPIVIR [Concomitant]
     Active Substance: LAMIVUDINE
  10. RETROVIR [Concomitant]
     Active Substance: ZIDOVUDINE
  11. SUSTIVA [Concomitant]
     Active Substance: EFAVIRENZ
  12. VIRACEPT [Concomitant]
     Active Substance: NELFINAVIR MESYLATE
  13. ZERIT [Concomitant]
     Active Substance: STAVUDINE
  14. ROXICODONE [Concomitant]
     Active Substance: OXYCODONE HYDROCHLORIDE
  15. LOPERAMIDE [Concomitant]
     Active Substance: LOPERAMIDE
  16. PREDNISONE [Concomitant]
     Active Substance: PREDNISONE
  17. FERROUS GLUCONATE [Concomitant]
     Active Substance: FERROUS GLUCONATE
  18. AMBIEN [Concomitant]
     Active Substance: ZOLPIDEM TARTRATE
  19. VIOXX [Concomitant]
     Active Substance: ROFECOXIB
  20. GEMFIBROZIL [Concomitant]
     Active Substance: GEMFIBROZIL
  21. AMINOCAPROIC ACID [Concomitant]
     Active Substance: AMINOCAPROIC ACID
  22. OXYCODONE [Concomitant]
     Active Substance: OXYCODONE
  23. AMOXICILLIN [Concomitant]
     Active Substance: AMOXICILLIN
  24. LISINOPRIL [Concomitant]
     Active Substance: LISINOPRIL
  25. AZITHROMYCIN [Concomitant]
     Active Substance: AZITHROMYCIN
  26. SERTRALINE [Concomitant]
     Active Substance: SERTRALINE HYDROCHLORIDE
  27. TEV-TROPIN [Concomitant]
     Active Substance: SOMATROPIN
  28. AMICAR [Concomitant]
     Active Substance: AMINOCAPROIC ACID
  29. VERAMYST [Concomitant]
     Active Substance: FLUTICASONE FUROATE
  30. OMEPRAZOLE [Concomitant]
     Active Substance: OMEPRAZOLE
  31. METHYLPREDNISOLONE [Concomitant]
     Active Substance: METHYLPREDNISOLONE
  32. LEVOCETIRIZINE [Concomitant]
     Active Substance: LEVOCETIRIZINE
  33. ACETAMINOPHEN\HYDROCODONE [Concomitant]
     Active Substance: ACETAMINOPHEN\HYDROCODONE
  34. CIPROFLOXACIN [Concomitant]
     Active Substance: CIPROFLOXACIN
  35. OXYCONTIN [Concomitant]
     Active Substance: OXYCODONE HYDROCHLORIDE
  36. CEPHALEXIN [Concomitant]
     Active Substance: CEPHALEXIN
  37. AMLODIPINE [Concomitant]
     Active Substance: AMLODIPINE BESYLATE
  38. HYDROCHLOROTHIAZIDE [Concomitant]
     Active Substance: HYDROCHLOROTHIAZIDE
  39. CELEBREX [Concomitant]
     Active Substance: CELECOXIB
  40. NYSTATIN [Concomitant]
     Active Substance: NYSTATIN
  41. CYCLOBENZAPRINE [Concomitant]
     Active Substance: CYCLOBENZAPRINE
  42. VALACYCLOVIR [Concomitant]
     Active Substance: VALACYCLOVIR HYDROCHLORIDE
  43. FLOMAX [Concomitant]
     Active Substance: TAMSULOSIN HYDROCHLORIDE
  44. BUPROPION [Concomitant]
     Active Substance: BUPROPION
  45. CLONAZEPAM [Concomitant]
     Active Substance: CLONAZEPAM
  46. SILDENAFIL [Concomitant]
     Active Substance: SILDENAFIL
  47. POTASSIUM CHLORIDE [Concomitant]
     Active Substance: POTASSIUM CHLORIDE
  48. GABAPENTIN [Concomitant]
     Active Substance: GABAPENTIN
  49. ZOSYN [Concomitant]
     Active Substance: PIPERACILLIN SODIUM\TAZOBACTAM SODIUM
  50. NEXIUM I.V. [Concomitant]
     Active Substance: ESOMEPRAZOLE SODIUM
  51. SODIUM FLUORIDE [Concomitant]
     Active Substance: SODIUM FLUORIDE
  52. NOVOSEVEN [Concomitant]
     Active Substance: COAGULATION FACTOR VIIA RECOMBINANT HUMAN
  53. HEPARIN [Concomitant]
     Active Substance: HEPARIN SODIUM
  54. FEIBA [Concomitant]
     Active Substance: ANTI-INHIBITOR COAGULANT COMPLEX
  55. HEMLIBRA [Concomitant]
     Active Substance: EMICIZUMAB-KXWH
  56. LYSTEDA [Concomitant]
     Active Substance: TRANEXAMIC ACID
  57. SOMATROPIN [Concomitant]
     Active Substance: SOMATROPIN
  58. TYLENOL PM [Concomitant]
     Active Substance: ACETAMINOPHEN\DIPHENHYDRAMINE
  59. AMITRIPTYLINE [Concomitant]
     Active Substance: AMITRIPTYLINE
  60. PREGABALIN [Concomitant]
     Active Substance: PREGABALIN
  61. TRAZODONE [Concomitant]
     Active Substance: TRAZODONE HYDROCHLORIDE

REACTIONS (11)
  - Bone demineralisation [Unknown]
  - Bone density decreased [Not Recovered/Not Resolved]
  - Pain [Not Recovered/Not Resolved]
  - Anxiety [Not Recovered/Not Resolved]
  - Emotional distress [Not Recovered/Not Resolved]
  - Anhedonia [Not Recovered/Not Resolved]
  - Gait disturbance [Not Recovered/Not Resolved]
  - Dysstasia [Not Recovered/Not Resolved]
  - General physical health deterioration [Not Recovered/Not Resolved]
  - Mobility decreased [Not Recovered/Not Resolved]
  - Depression [Not Recovered/Not Resolved]

NARRATIVE: CASE EVENT DATE: 20180101
